FAERS Safety Report 8492882-1 (Version None)
Quarter: 2012Q3

REPORT INFORMATION
  Report Type: 
  Country: None (occurrence: None)
  Receive Date: 20120706
  Receipt Date: 20120628
  Transmission Date: 20120928
  Serious: Yes (Hospitalization)
  Sender: FDA-Public Use
  Company Number: US-JNJFOC-20120700527

PATIENT
  Sex: Female
  Weight: 69.4 kg

DRUGS (3)
  1. MESALAMINE [Concomitant]
     Route: 048
  2. ANTIBIOTICS FOR IBD [Concomitant]
  3. REMICADE [Suspect]
     Indication: INFLAMMATORY BOWEL DISEASE
     Route: 042
     Dates: start: 20110911

REACTIONS (1)
  - PNEUMONIA [None]
